FAERS Safety Report 11010254 (Version 1)
Quarter: 2015Q2

REPORT INFORMATION
  Report Type: Spontaneous
  Country: US (occurrence: US)
  Receive Date: 20150410
  Receipt Date: 20150410
  Transmission Date: 20150821
  Serious: No
  Sender: FDA-Public Use
  Company Number: US-ASTRAZENECA-1994AU00449

PATIENT
  Age: 58 Year
  Sex: Female
  Weight: 181.4 kg

DRUGS (22)
  1. NEXIUM [Suspect]
     Active Substance: ESOMEPRAZOLE MAGNESIUM
     Indication: GASTROOESOPHAGEAL REFLUX DISEASE
     Route: 048
  2. ALLEGRA-D [Concomitant]
     Active Substance: FEXOFENADINE\PSEUDOEPHEDRINE
     Indication: HYPERSENSITIVITY
     Dosage: DAILY
     Route: 048
     Dates: start: 2004
  3. PRILOSEC [Suspect]
     Active Substance: OMEPRAZOLE MAGNESIUM
     Indication: GASTRITIS
     Route: 048
     Dates: start: 1993
  4. CLONAZEPAM. [Concomitant]
     Active Substance: CLONAZEPAM
     Indication: BACK PAIN
     Dosage: 0.5MG 1 TABLET 3 TO 4 TIME
     Route: 048
     Dates: start: 1995
  5. MULTI VITAMIN [Concomitant]
     Active Substance: VITAMINS
     Indication: ILL-DEFINED DISORDER
     Dosage: DAILY
     Route: 048
     Dates: start: 1994
  6. NEXIUM [Suspect]
     Active Substance: ESOMEPRAZOLE MAGNESIUM
     Indication: GASTRITIS
     Route: 048
  7. PREDNISONE. [Suspect]
     Active Substance: PREDNISONE
     Indication: CELLULITIS
     Route: 048
     Dates: start: 2012
  8. PRILOSEC [Suspect]
     Active Substance: OMEPRAZOLE MAGNESIUM
     Indication: ULCER
     Route: 048
     Dates: start: 1993
  9. PRILOSEC [Suspect]
     Active Substance: OMEPRAZOLE MAGNESIUM
     Indication: OESOPHAGEAL SPASM
     Route: 048
     Dates: start: 1993
  10. NEXIUM [Suspect]
     Active Substance: ESOMEPRAZOLE MAGNESIUM
     Indication: OESOPHAGEAL SPASM
     Route: 048
  11. LIBRAX [Concomitant]
     Active Substance: CHLORDIAZEPOXIDE HYDROCHLORIDE\CLIDINIUM BROMIDE
     Indication: IRRITABLE BOWEL SYNDROME
     Dosage: 5MG 2.5MG 1 TABLET 3 TO 4 TIME
     Route: 048
     Dates: start: 1995
  12. ALLOPURINOL. [Concomitant]
     Active Substance: ALLOPURINOL
     Indication: GOUT
     Route: 048
     Dates: start: 2005
  13. RELEFAN [Concomitant]
     Indication: INTERVERTEBRAL DISC DEGENERATION
     Route: 048
     Dates: start: 1995
  14. RELEFAN [Concomitant]
     Indication: OSTEOARTHRITIS
     Route: 048
     Dates: start: 1995
  15. METHOTREXATE [Concomitant]
     Active Substance: METHOTREXATE
     Indication: DERMATITIS
     Dosage: 2.5MG 4TABS QWEEKLY
     Route: 048
     Dates: start: 2012
  16. LEVOTHYROXINE [Concomitant]
     Active Substance: LEVOTHYROXINE
     Indication: HYPOTHYROIDISM
     Route: 048
     Dates: start: 1994
  17. LIOTHYRONINE [Concomitant]
     Active Substance: LIOTHYRONINE
     Indication: HYPOTHYROIDISM
     Route: 048
     Dates: start: 2012
  18. LASIX [Concomitant]
     Active Substance: FUROSEMIDE
     Indication: FLUID RETENTION
     Route: 048
     Dates: start: 2010
  19. NEXIUM [Suspect]
     Active Substance: ESOMEPRAZOLE MAGNESIUM
     Indication: GASTRINOMA
     Route: 048
  20. PREDNISONE. [Suspect]
     Active Substance: PREDNISONE
     Indication: DERMATITIS
     Route: 048
     Dates: start: 2012
  21. LIBRAX [Concomitant]
     Active Substance: CHLORDIAZEPOXIDE HYDROCHLORIDE\CLIDINIUM BROMIDE
     Indication: BACK PAIN
     Dosage: 5MG 2.5MG 1 TABLET 3 TO 4 TIME
     Route: 048
     Dates: start: 1995
  22. METHOTREXATE [Concomitant]
     Active Substance: METHOTREXATE
     Indication: CELLULITIS
     Dosage: 2.5MG 4TABS QWEEKLY
     Route: 048
     Dates: start: 2012

REACTIONS (25)
  - Osteoarthritis [Unknown]
  - Back pain [Unknown]
  - Pain [Unknown]
  - Adrenal insufficiency [Unknown]
  - Hypertension [Unknown]
  - Irritable bowel syndrome [Unknown]
  - Weight increased [Unknown]
  - Hyperchlorhydria [Unknown]
  - Systemic lupus erythematosus [Unknown]
  - Cholelithiasis [Unknown]
  - Migraine with aura [Unknown]
  - Arthropathy [Unknown]
  - Nephrolithiasis [Unknown]
  - Cellulitis [Unknown]
  - Oesophageal spasm [Unknown]
  - Diverticulum [Unknown]
  - Gastrinoma [Unknown]
  - Hypothyroidism [Unknown]
  - Blood thyroid stimulating hormone increased [Unknown]
  - Hyperglycaemia [Unknown]
  - Fibromyalgia [Unknown]
  - Eructation [Unknown]
  - Abdominal discomfort [Unknown]
  - Drug effect decreased [Unknown]
  - Gout [Unknown]

NARRATIVE: CASE EVENT DATE: 1993
